FAERS Safety Report 9337735 (Version 1)
Quarter: 2013Q2

REPORT INFORMATION
  Report Type: Spontaneous
  Country: ID (occurrence: ID)
  Receive Date: 20130607
  Receipt Date: 20130607
  Transmission Date: 20140414
  Serious: Yes (Other)
  Sender: FDA-Public Use
  Company Number: ID-ASTRAZENECA-2013SE38333

PATIENT
  Age: 60 Year
  Sex: Female

DRUGS (3)
  1. BRILINTA [Suspect]
     Route: 048
  2. BRILINTA [Suspect]
     Route: 048
  3. CLOPIDOGREL [Concomitant]

REACTIONS (2)
  - Thrombosis in device [Unknown]
  - Chest pain [Unknown]
